FAERS Safety Report 20971049 (Version 1)
Quarter: 2022Q2

REPORT INFORMATION
  Report Type: Spontaneous
  Country: US (occurrence: US)
  Receive Date: 20220616
  Receipt Date: 20220616
  Transmission Date: 20220720
  Serious: No
  Sender: FDA-Public Use
  Company Number: US-SA-SAC20220609000221

PATIENT
  Sex: Female

DRUGS (2)
  1. DUPIXENT [Suspect]
     Active Substance: DUPILUMAB
     Indication: Asthma
     Dosage: UNK UNK, 1X (2 PENS INJECTED AT 2 DIFFERENT SITES)
     Route: 058
  2. DUPIXENT [Suspect]
     Active Substance: DUPILUMAB
     Dosage: UNK UNK, QOW (1 PEN)
     Route: 058

REACTIONS (2)
  - Asthma [Not Recovered/Not Resolved]
  - Impaired quality of life [Not Recovered/Not Resolved]
